FAERS Safety Report 5402325-X (Version None)
Quarter: 2007Q3

REPORT INFORMATION
  Report Type: 
  Country: None (occurrence: None)
  Receive Date: 20070801
  Receipt Date: 20070713
  Transmission Date: 20080115
  Serious: Yes (Other)
  Sender: FDA-Public Use
  Company Number: IE-AVENTIS-200716877GDDC

PATIENT
  Age: 41 Year
  Sex: Female

DRUGS (2)
  1. RIFADIN [Suspect]
     Route: 048
     Dates: start: 20070620
  2. EFEXOR                             /01233802/ [Concomitant]
     Dosage: DOSE: UNK

REACTIONS (3)
  - BACK PAIN [None]
  - HYPERKINESIA [None]
  - PAIN IN EXTREMITY [None]
